FAERS Safety Report 18682953 (Version 1)
Quarter: 2020Q4

REPORT INFORMATION
  Report Type: Spontaneous
  Country: US (occurrence: US)
  Receive Date: 20201230
  Receipt Date: 20201230
  Transmission Date: 20210114
  Serious: No
  Sender: FDA-Public Use
  Company Number: US-COOPERSURGICAL, INC.-US-2020CPS002896

PATIENT
  Age: 36 Year
  Sex: Female
  Weight: 61.68 kg

DRUGS (2)
  1. MULTIVITAMINS                      /00116001/ [Concomitant]
     Active Substance: VITAMINS
     Indication: PRODUCT USED FOR UNKNOWN INDICATION
     Route: 065
  2. PARAGARD T 380A [Suspect]
     Active Substance: COPPER
     Indication: CONTRACEPTION
     Dosage: UNK
     Route: 015
     Dates: start: 20200929

REACTIONS (3)
  - Abdominal discomfort [Unknown]
  - Device dislocation [Not Recovered/Not Resolved]
  - Dyspareunia [Unknown]

NARRATIVE: CASE EVENT DATE: 2020
